FAERS Safety Report 17980812 (Version 1)
Quarter: 2020Q3

REPORT INFORMATION
  Report Type: Spontaneous
  Country: CO (occurrence: CO)
  Receive Date: 20200704
  Receipt Date: 20200704
  Transmission Date: 20201103
  Serious: Yes (Life-Threatening, Hospitalization, Other)
  Sender: FDA-Public Use
  Company Number: CO-B.I. PHARMACEUTICALS,INC./RIDGEFIELD-2020-BI-033433

PATIENT
  Age: 49 Year
  Sex: Male

DRUGS (1)
  1. ATROVENT [Suspect]
     Active Substance: IPRATROPIUM BROMIDE
     Indication: ASTHMA
     Route: 065

REACTIONS (7)
  - Asthmatic crisis [Recovered/Resolved]
  - Hypercapnia [Recovered/Resolved]
  - Lower respiratory tract infection [Recovered/Resolved]
  - Status asthmaticus [Recovered/Resolved]
  - Oedema [Recovered/Resolved]
  - Hypoxia [Recovered/Resolved]
  - Acidosis [Recovered/Resolved]
